FAERS Safety Report 9222008 (Version 1)
Quarter: 2013Q1

REPORT INFORMATION
  Report Type: Spontaneous
  Country: US (occurrence: None)
  Receive Date: 20120910
  Receipt Date: 20120910
  Transmission Date: 20140127
  Serious: No
  Sender: FDA-Public Use
  Company Number: 1207USA00431

PATIENT
  Age: 63 Year
  Sex: Female
  Weight: 59 kg

DRUGS (5)
  1. ZIOPTAN (TAFLUPROST) EYE DROPS, SOLUTION, 0.0015% [Suspect]
     Indication: GLAUCOMA
     Route: 047
     Dates: start: 20120701, end: 20120703
  2. COMBIGAN (BRIMONDINE TARTRATE, TIMOLOL MALEAT) [Concomitant]
  3. ARMOUR THYROID TABLETS (THYROID) [Concomitant]
  4. HYDROCHLOROTHIAZIDE) [Concomitant]
  5. ESTRACE (ESTRADIOL) [Concomitant]

REACTIONS (4)
  - Ocular hyperaemia [None]
  - Eye pain [None]
  - Eye pruritus [None]
  - Eye irritation [None]
